FAERS Safety Report 14975408 (Version 3)
Quarter: 2019Q3

REPORT INFORMATION
  Report Type: Spontaneous
  Country: GR (occurrence: GR)
  Receive Date: 20180605
  Receipt Date: 20190724
  Transmission Date: 20191004
  Serious: Yes (Hospitalization, Other)
  Sender: FDA-Public Use
  Company Number: GR-MYLANLABS-2018M1036881

PATIENT
  Age: 54 Year
  Sex: Female

DRUGS (23)
  1. ZOLEDRONIC ACID [Suspect]
     Active Substance: ZOLEDRONIC ACID
     Indication: INVASIVE DUCTAL BREAST CARCINOMA
     Dosage: 1 DF, CYCLE (1 IN 1 CYCLICAL) (UNK, QCYCLE )
     Route: 065
     Dates: start: 2008, end: 2008
  2. GEMCITABINE. [Suspect]
     Active Substance: GEMCITABINE
     Indication: INVASIVE DUCTAL BREAST CARCINOMA
     Dosage: 1 DF, CYCLE (1 IN 1 CYCLICAL) (UNK, QCYCLE)
     Route: 065
     Dates: start: 2008, end: 2008
  3. LIPOSOMAL DOXORUBICIN HYDROCHLORIDE [Suspect]
     Active Substance: DOXORUBICIN HYDROCHLORIDE
     Indication: INVASIVE DUCTAL BREAST CARCINOMA
     Dosage: 1 DF, CYCLE (1 IN 1 CYCLICAL) (UNK, QCYCLE)
     Route: 065
     Dates: start: 2008, end: 2008
  4. CAPECITABINE. [Suspect]
     Active Substance: CAPECITABINE
     Indication: INVASIVE DUCTAL BREAST CARCINOMA
     Dosage: 1 DF, CYCLE (1 IN 1 CYCLICAL) (UNK, QCYCLE )
     Route: 042
     Dates: start: 2008, end: 2008
  5. CARBOPLATIN. [Suspect]
     Active Substance: CARBOPLATIN
     Indication: INVASIVE DUCTAL BREAST CARCINOMA
  6. BEVACIZUMAB. [Suspect]
     Active Substance: BEVACIZUMAB
     Indication: INVASIVE DUCTAL BREAST CARCINOMA
     Dosage: 1 DF, CYCLE (1 IN 1 CYCLICAL) (UNK, QCYCLE )
     Route: 065
     Dates: start: 2008, end: 2008
  7. BEVACIZUMAB. [Suspect]
     Active Substance: BEVACIZUMAB
     Indication: METASTASES TO BONE
  8. VINORELBINE [Suspect]
     Active Substance: VINORELBINE TARTRATE
     Indication: METASTASES TO BONE
  9. INIPARIB [Suspect]
     Active Substance: INIPARIB
     Indication: METASTASES TO BONE
  10. ERIBULIN [Suspect]
     Active Substance: ERIBULIN
     Indication: INVASIVE DUCTAL BREAST CARCINOMA
     Dosage: 1 DF, CYCLE (1 IN 1 CYCLICAL) (UNK, QCYCLE)
     Route: 042
     Dates: start: 2008, end: 2008
  11. CYCLOPHOSPHAMID [Suspect]
     Active Substance: CYCLOPHOSPHAMIDE
     Indication: INVASIVE DUCTAL BREAST CARCINOMA
     Dosage: UNK UNK, CYCLE (UNKNOWN REGIMEN) (UNK, QCYCLE)
     Route: 065
  12. GEMCITABINE. [Suspect]
     Active Substance: GEMCITABINE
     Indication: METASTASES TO BONE
  13. LIPOSOMAL DOXORUBICIN HYDROCHLORIDE [Suspect]
     Active Substance: DOXORUBICIN HYDROCHLORIDE
     Indication: METASTASES TO BONE
  14. 5-FLUOROURACIL                     /00098801/ [Suspect]
     Active Substance: FLUOROURACIL
     Indication: INVASIVE DUCTAL BREAST CARCINOMA
     Dosage: 1 DF, CYCLE (1 IN 1 CYCLICAL) (UNK, QCYCLE)
     Route: 065
  15. VINORELBINE [Suspect]
     Active Substance: VINORELBINE TARTRATE
     Indication: INVASIVE DUCTAL BREAST CARCINOMA
     Dosage: 1 DF, CYCLE (1 IN 1 CYCLICAL) (UNK, QCYCLE)
     Route: 065
     Dates: start: 2008, end: 2008
  16. ZOLEDRONIC ACID [Suspect]
     Active Substance: ZOLEDRONIC ACID
     Indication: METASTASES TO BONE
  17. DOCETAXEL. [Suspect]
     Active Substance: DOCETAXEL
     Indication: INVASIVE DUCTAL BREAST CARCINOMA
     Dosage: 1 DF, CYCLE (1 IN 1 CYCLICAL) (UNK, QCYCLE)
     Route: 042
     Dates: start: 2008, end: 2008
  18. DOCETAXEL. [Suspect]
     Active Substance: DOCETAXEL
     Indication: METASTASES TO BONE
  19. NOVANTRONE [Suspect]
     Active Substance: MITOXANTRONE HYDROCHLORIDE
     Indication: INVASIVE DUCTAL BREAST CARCINOMA
     Dosage: 1 DF, CYCLE (1 IN 1 CYCLICAL) (UNK, QCYCLE)
     Route: 065
  20. INIPARIB [Suspect]
     Active Substance: INIPARIB
     Indication: INVASIVE DUCTAL BREAST CARCINOMA
     Dosage: 1 DF, CYCLE (1 IN 1 CYCLICAL) (UNK, QCYCLE )
     Route: 042
     Dates: start: 2008, end: 2008
  21. CARBOPLATIN. [Suspect]
     Active Substance: CARBOPLATIN
     Indication: METASTASES TO BONE
     Dosage: 1 DF, CYCLE (1 IN 1 CYCLICAL)
     Route: 065
     Dates: start: 2008, end: 2008
  22. PACLITAXEL. [Suspect]
     Active Substance: PACLITAXEL
     Indication: INVASIVE DUCTAL BREAST CARCINOMA
     Dosage: 1 DF, CYCLE (1 IN 1 CYCLICAL) (UNK, QCYCLE)
     Route: 065
     Dates: start: 2008, end: 2008
  23. LETROZOLE. [Concomitant]
     Active Substance: LETROZOLE
     Indication: METASTASES TO BONE
     Dosage: UNK
     Route: 042

REACTIONS (8)
  - Intentional product misuse [Unknown]
  - Anaemia [Unknown]
  - Invasive ductal breast carcinoma [Unknown]
  - Metastases to bone marrow [Unknown]
  - Medication error [Unknown]
  - Product use in unapproved indication [Unknown]
  - Malignant neoplasm progression [Unknown]
  - Thrombocytopenia [Unknown]

NARRATIVE: CASE EVENT DATE: 2008
